FAERS Safety Report 8765230 (Version 1)
Quarter: 2012Q4

REPORT INFORMATION
  Report Type: 
  Country: US (occurrence: US)
  Receive Date: 20120903
  Receipt Date: 20120903
  Transmission Date: 20130627
  Serious: No
  Sender: FDA-Public Use
  Company Number: US-PFIZER INC-2012213706

PATIENT
  Sex: Female

DRUGS (2)
  1. ARTHROTEC [Suspect]
     Dosage: UNK
  2. FELDENE [Suspect]
     Dosage: UNK

REACTIONS (4)
  - Insomnia [Unknown]
  - Back pain [Unknown]
  - Pain [Unknown]
  - Malaise [Unknown]
